FAERS Safety Report 9948516 (Version 1)
Quarter: 2014Q1

REPORT INFORMATION
  Report Type: Report from Study
  Country: US (occurrence: US)
  Receive Date: 20140303
  Receipt Date: 20140303
  Transmission Date: 20141002
  Serious: No
  Sender: FDA-Public Use
  Company Number: US-ABBVIE-13P-163-1057320-00

PATIENT
  Age: 73 Year
  Sex: Female
  Weight: 65.83 kg

DRUGS (16)
  1. DICYCLOMINE [Concomitant]
     Indication: IRRITABLE BOWEL SYNDROME
  2. METOPROLOL [Concomitant]
     Indication: HYPERTENSION
  3. CALCIUM [Concomitant]
     Indication: SUPPLEMENTATION THERAPY
  4. LORATIDINE [Concomitant]
     Indication: UPPER-AIRWAY COUGH SYNDROME
  5. ASPIRIN [Concomitant]
     Indication: PRODUCT USED FOR UNKNOWN INDICATION
  6. VITAMIN E [Concomitant]
     Indication: VITAMIN SUPPLEMENTATION
  7. VITAMIN B12 COMPLEX [Concomitant]
     Indication: ASTHENIA
  8. FIBER [Concomitant]
     Indication: IRRITABLE BOWEL SYNDROME
  9. TRIAMCINOLONE ACETONIDE [Concomitant]
     Indication: PRODUCT USED FOR UNKNOWN INDICATION
  10. VITAMINS [Concomitant]
     Indication: VITAMIN SUPPLEMENTATION
  11. VITAMIN C [Concomitant]
     Indication: VITAMIN SUPPLEMENTATION
  12. HUMIRA [Suspect]
     Indication: PSORIATIC ARTHROPATHY
     Dates: start: 20110405, end: 201207
  13. HUMIRA [Suspect]
     Dates: start: 20120722
  14. LEVOTHYROXINE [Concomitant]
     Indication: THYROID DISORDER
  15. ZOLOFT [Concomitant]
     Indication: SLEEP DISORDER THERAPY
  16. ZOLOFT [Concomitant]
     Indication: ANXIETY

REACTIONS (22)
  - Bunion [Not Recovered/Not Resolved]
  - Drug ineffective [Recovered/Resolved]
  - Pain [Recovered/Resolved]
  - Local swelling [Recovered/Resolved]
  - Rash [Not Recovered/Not Resolved]
  - Dermatitis [Not Recovered/Not Resolved]
  - Rash pruritic [Not Recovered/Not Resolved]
  - Exfoliative rash [Not Recovered/Not Resolved]
  - Rash macular [Not Recovered/Not Resolved]
  - Skin discolouration [Not Recovered/Not Resolved]
  - Psoriasis [Not Recovered/Not Resolved]
  - Local swelling [Not Recovered/Not Resolved]
  - Unevaluable event [Recovered/Resolved]
  - Gait disturbance [Not Recovered/Not Resolved]
  - Arthritis [Not Recovered/Not Resolved]
  - Bone disorder [Not Recovered/Not Resolved]
  - Bunion [Not Recovered/Not Resolved]
  - Bone deformity [Not Recovered/Not Resolved]
  - Hyperkeratosis [Not Recovered/Not Resolved]
  - Pain in extremity [Not Recovered/Not Resolved]
  - Mood altered [Recovered/Resolved]
  - Pruritus [Not Recovered/Not Resolved]
